FAERS Safety Report 17022259 (Version 3)
Quarter: 2021Q3

REPORT INFORMATION
  Report Type: Report from Study
  Country: FR (occurrence: FR)
  Receive Date: 20191112
  Receipt Date: 20210929
  Transmission Date: 20211014
  Serious: Yes (Other)
  Sender: FDA-Public Use
  Company Number: FR-MYLANLABS-2019M1107050

PATIENT
  Sex: Male
  Weight: 87 kg

DRUGS (19)
  1. BICALUTAMIDE. [Suspect]
     Active Substance: BICALUTAMIDE
     Indication: PROSTATE CANCER METASTATIC
     Dosage: 25 MILLIGRAM, CYCLE
     Route: 048
     Dates: start: 20181025, end: 20181025
  2. DOCETAXEL. [Suspect]
     Active Substance: DOCETAXEL
     Dosage: 130 MILLIGRAM, CYCLE
     Route: 042
     Dates: start: 20190307, end: 20190307
  3. ABIRATERONE ACETATE. [Suspect]
     Active Substance: ABIRATERONE ACETATE
     Indication: PROSTATE CANCER METASTATIC
     Dosage: 1000 MILLIGRAM, QD
     Route: 048
     Dates: start: 20180502, end: 20180502
  4. TRIPTORELIN ACETATE [Suspect]
     Active Substance: TRIPTORELIN ACETATE
     Indication: PROSTATE CANCER METASTATIC
     Dosage: 1125 MILLIGRAM, QD
     Route: 042
     Dates: start: 20181025, end: 20181025
  5. ABIRATERONE ACETATE. [Suspect]
     Active Substance: ABIRATERONE ACETATE
     Dosage: 1000 MILLIGRAM, CYCLE
     Route: 042
     Dates: start: 20180502, end: 20180502
  6. PREDNISONE. [Suspect]
     Active Substance: PREDNISONE
     Dosage: 5 MILLIGRAM, QD
     Route: 048
     Dates: start: 20190502, end: 20190502
  7. ABIRATERONE ACETATE. [Suspect]
     Active Substance: ABIRATERONE ACETATE
     Dosage: 1000 MILLIGRAM, QD
     Route: 048
     Dates: start: 20181122, end: 20181122
  8. ABIRATERONE ACETATE. [Suspect]
     Active Substance: ABIRATERONE ACETATE
     Dosage: 1000 MILLIGRAM, CYCLE
     Route: 042
     Dates: start: 20181122, end: 20181122
  9. TRIPTORELIN ACETATE [Suspect]
     Active Substance: TRIPTORELIN ACETATE
     Dosage: 1125 MILLIGRAM, QD
     Route: 042
     Dates: start: 201904, end: 201904
  10. BICALUTAMIDE. [Suspect]
     Active Substance: BICALUTAMIDE
     Dosage: 50 MILLIGRAM, CYCLE
     Route: 048
     Dates: start: 20181025, end: 20181025
  11. PREDNISONE. [Suspect]
     Active Substance: PREDNISONE
     Indication: PROSTATE CANCER METASTATIC
     Dosage: 5 MILLIGRAM, QD
     Route: 048
     Dates: start: 20181122, end: 20181122
  12. DOCETAXEL. [Suspect]
     Active Substance: DOCETAXEL
     Dosage: 150 MILLIGRAM, QD
     Route: 065
     Dates: start: 20190307, end: 20190307
  13. DOCETAXEL. [Suspect]
     Active Substance: DOCETAXEL
     Dosage: 150 MILLIGRAM, CYCLE
     Route: 042
     Dates: start: 20181122, end: 20181122
  14. TRIPTORELIN ACETATE [Suspect]
     Active Substance: TRIPTORELIN ACETATE
     Dosage: 1125 MILLIGRAM, CYCLE
     Route: 042
     Dates: start: 20181025, end: 20181025
  15. PREDNISONE. [Suspect]
     Active Substance: PREDNISONE
     Dosage: 5 MILLIGRAM, CYCLE
     Route: 048
     Dates: start: 20181122, end: 20181122
  16. DOCETAXEL. [Suspect]
     Active Substance: DOCETAXEL
     Indication: PROSTATE CANCER METASTATIC
     Dosage: 150 MILLIGRAM, QD
     Route: 065
     Dates: start: 20181122, end: 20181122
  17. BICALUTAMIDE. [Suspect]
     Active Substance: BICALUTAMIDE
     Dosage: 50 MILLIGRAM, CYCLE
     Route: 048
     Dates: start: 20181125, end: 20181125
  18. PREDNISONE. [Suspect]
     Active Substance: PREDNISONE
     Dosage: 5 MILLIGRAM, CYCLE
     Route: 048
     Dates: start: 20190502, end: 20190502
  19. DOCETAXEL. [Suspect]
     Active Substance: DOCETAXEL
     Dosage: 150 MILLIGRAM, CYCLE
     Route: 042
     Dates: start: 20190307, end: 20190307

REACTIONS (1)
  - Tendon rupture [Not Recovered/Not Resolved]

NARRATIVE: CASE EVENT DATE: 20190502
